FAERS Safety Report 10184282 (Version 1)
Quarter: 2014Q2

REPORT INFORMATION
  Report Type: Report from Study
  Country: JP (occurrence: JP)
  Receive Date: 20140520
  Receipt Date: 20140520
  Transmission Date: 20141212
  Serious: Yes (Hospitalization)
  Sender: FDA-Public Use
  Company Number: JP-B.I. PHARMACEUTICALS,INC./RIDGEFIELD-2014-BI-21427NB

PATIENT
  Age: 70 Year
  Sex: Male
  Weight: 66.7 kg

DRUGS (4)
  1. TRAZENTA [Suspect]
     Indication: TYPE 2 DIABETES MELLITUS
     Dosage: 5 MG
     Route: 048
     Dates: start: 20121121
  2. UNISIA [Concomitant]
     Dosage: 1 DF
     Route: 048
     Dates: end: 20130723
  3. LIPITOR [Concomitant]
     Dosage: 5 MG
     Route: 048
  4. WARFARIN [Concomitant]
     Indication: PROPHYLAXIS
     Dosage: 3.5 MG
     Route: 048

REACTIONS (1)
  - Angina unstable [Recovered/Resolved]
